FAERS Safety Report 5828348-4 (Version None)
Quarter: 2008Q3

REPORT INFORMATION
  Report Type: 
  Country: None (occurrence: None)
  Receive Date: 20080729
  Receipt Date: 20080716
  Transmission Date: 20090109
  Serious: Yes (Death, Hospitalization)
  Sender: FDA-Public Use
  Company Number: FABR-1000136

PATIENT
  Sex: Male

DRUGS (1)
  1. FABRAZYME [Suspect]
     Indication: FABRY'S DISEASE

REACTIONS (7)
  - CONDITION AGGRAVATED [None]
  - DIARRHOEA [None]
  - DISEASE PROGRESSION [None]
  - INTESTINAL MASS [None]
  - MALNUTRITION [None]
  - POST PROCEDURAL FISTULA [None]
  - SEPSIS [None]
